FAERS Safety Report 5156524-5 (Version None)
Quarter: 2006Q4

REPORT INFORMATION
  Report Type: 
  Country: None (occurrence: None)
  Receive Date: 20061115
  Receipt Date: 20061103
  Transmission Date: 20070319
  Serious: Yes (Hospitalization)
  Sender: FDA-Public Use
  Company Number: 2006BI014732

PATIENT

DRUGS (1)
  1. AVONEX [Suspect]
     Indication: MULTIPLE SCLEROSIS
     Dosage: 30 UG;QW;IM
     Route: 030
     Dates: start: 20041201, end: 20051201

REACTIONS (6)
  - ABSCESS [None]
  - CELLULITIS [None]
  - INJECTION SITE INFECTION [None]
  - INJECTION SITE IRRITATION [None]
  - POOR PERSONAL HYGIENE [None]
  - SCAB [None]
